FAERS Safety Report 12651372 (Version 2)
Quarter: 2016Q3

REPORT INFORMATION
  Report Type: Report from Study
  Country: US (occurrence: US)
  Receive Date: 20160815
  Receipt Date: 20160830
  Transmission Date: 20161109
  Serious: Yes (Hospitalization)
  Sender: FDA-Public Use
  Company Number: US-TAIHO ONCOLOGY INC-EU-2016-01979

PATIENT
  Age: 54 Year
  Sex: Male
  Weight: 60.7 kg

DRUGS (2)
  1. LONSURF [Suspect]
     Active Substance: TIPIRACIL HYDROCHLORIDE\TRIFLURIDINE
     Indication: ADENOCARCINOMA OF COLON
     Dosage: CYCLE 2; DOSAGE AND FREQUENCY UNKNOWN
     Route: 048
     Dates: start: 20160615, end: 2016
  2. ENOXAPARIN [Concomitant]
     Active Substance: ENOXAPARIN
     Dosage: NI

REACTIONS (4)
  - Disease progression [Unknown]
  - Leukocytosis [Unknown]
  - Weight decreased [Unknown]
  - Decreased appetite [Unknown]

NARRATIVE: CASE EVENT DATE: 2016
